FAERS Safety Report 16771939 (Version 6)
Quarter: 2020Q3

REPORT INFORMATION
  Report Type: Spontaneous
  Country: US (occurrence: US)
  Receive Date: 20190904
  Receipt Date: 20200807
  Transmission Date: 20201102
  Serious: Yes (Hospitalization, Other)
  Sender: FDA-Public Use
  Company Number: US-PFIZER INC-2019377081

PATIENT
  Age: 54 Year
  Sex: Female
  Weight: 88.44 kg

DRUGS (9)
  1. FOSAMAX [Concomitant]
     Active Substance: ALENDRONATE SODIUM
     Indication: OSTEOPENIA
     Dosage: UNK
  2. CELEBREX [Suspect]
     Active Substance: CELECOXIB
     Indication: PAIN IN EXTREMITY
     Dosage: 200 MG, 2X/DAY
     Route: 048
     Dates: start: 1999
  3. GABAPENTIN. [Concomitant]
     Active Substance: GABAPENTIN
     Indication: PAIN
     Dosage: 600 MG, 3X/DAY
     Route: 048
     Dates: start: 20180910
  4. TIZANIDINE. [Concomitant]
     Active Substance: TIZANIDINE
     Indication: MUSCLE SPASMS
     Dosage: 4 MG, 1X/DAY (NIGHTLY)
     Route: 048
     Dates: start: 20180910
  5. CELEBREX [Suspect]
     Active Substance: CELECOXIB
     Indication: BACK PAIN
  6. CELEBREX [Suspect]
     Active Substance: CELECOXIB
     Indication: SPINAL PAIN
  7. CELEBREX [Suspect]
     Active Substance: CELECOXIB
     Indication: MULTIPLE SCLEROSIS
  8. GABAPENTIN. [Concomitant]
     Active Substance: GABAPENTIN
     Indication: POST LAMINECTOMY SYNDROME
  9. AVONEX [Concomitant]
     Active Substance: INTERFERON BETA-1A
     Indication: MULTIPLE SCLEROSIS
     Dosage: 30 UG, WEEKLY 30 MCG (0.5 ML) EVERY 7 DAYS)
     Route: 030
     Dates: start: 1993

REACTIONS (3)
  - Spinal disorder [Not Recovered/Not Resolved]
  - Therapeutic product effect incomplete [Unknown]
  - Foot fracture [Recovering/Resolving]

NARRATIVE: CASE EVENT DATE: 20190729
